FAERS Safety Report 16198418 (Version 1)
Quarter: 2019Q2

REPORT INFORMATION
  Report Type: Spontaneous
  Country: DE (occurrence: DE)
  Receive Date: 20190415
  Receipt Date: 20190415
  Transmission Date: 20190711
  Serious: Yes (Hospitalization, Other)
  Sender: FDA-Public Use
  Company Number: DE-BAYER-2018-180081

PATIENT
  Age: 35 Year
  Sex: Female

DRUGS (2)
  1. JAYDESS [Suspect]
     Active Substance: LEVONORGESTREL
     Dosage: 14 MCG/24HR, CONT
     Route: 015
     Dates: start: 201302, end: 2016
  2. JAYDESS [Suspect]
     Active Substance: LEVONORGESTREL
     Dosage: 14 MCG/24HR, CONT
     Route: 015
     Dates: start: 2016, end: 201807

REACTIONS (8)
  - Depression [None]
  - Panic attack [None]
  - Anxiety [None]
  - Amenorrhoea [None]
  - Restlessness [Not Recovered/Not Resolved]
  - Withdrawal syndrome [None]
  - Suicidal ideation [None]
  - Progesterone decreased [Not Recovered/Not Resolved]

NARRATIVE: CASE EVENT DATE: 2014
